FAERS Safety Report 9565523 (Version 1)
Quarter: 2013Q3

REPORT INFORMATION
  Report Type: Report from Study
  Country: DE (occurrence: AT)
  Receive Date: 20130930
  Receipt Date: 20130930
  Transmission Date: 20140515
  Serious: Yes (Death)
  Sender: FDA-Public Use
  Company Number: DE-ACTELION-A-NJ2013-89010

PATIENT
  Sex: Male

DRUGS (1)
  1. VENTAVIS [Suspect]
     Indication: PRODUCT USED FOR UNKNOWN INDICATION
     Dosage: UNK
     Route: 055
     Dates: start: 201305

REACTIONS (1)
  - Renal failure [Fatal]
